FAERS Safety Report 17519825 (Version 2)
Quarter: 2022Q1

REPORT INFORMATION
  Report Type: Report from Study
  Country: CZ (occurrence: CZ)
  Receive Date: 20200310
  Receipt Date: 20220325
  Transmission Date: 20220424
  Serious: Yes (Other)
  Sender: FDA-Public Use
  Company Number: CZ-NOVARTISPH-PHHY2019CZ003473

PATIENT

DRUGS (2)
  1. TRAMETINIB [Suspect]
     Active Substance: TRAMETINIB
     Indication: Metastatic malignant melanoma
     Dosage: UNK
     Route: 048
     Dates: start: 20181127, end: 20190211
  2. DABRAFENIB [Suspect]
     Active Substance: DABRAFENIB
     Indication: Metastatic malignant melanoma
     Dosage: UNK
     Route: 048
     Dates: start: 20181127, end: 20190211

REACTIONS (12)
  - Lacunar stroke [Recovered/Resolved]
  - Dermatitis [Unknown]
  - Swelling face [Recovered/Resolved]
  - Eczema [Unknown]
  - Aspartate aminotransferase increased [Unknown]
  - Blood creatine phosphokinase increased [Unknown]
  - Myopathy [Unknown]
  - Hypoproteinaemia [Unknown]
  - Blood lactate dehydrogenase increased [Unknown]
  - Haematuria [Unknown]
  - Skin haemorrhage [Unknown]
  - Aphthous ulcer [Recovered/Resolved]

NARRATIVE: CASE EVENT DATE: 20181213
